FAERS Safety Report 21332796 (Version 1)
Quarter: 2022Q3

REPORT INFORMATION
  Report Type: Spontaneous
  Country: US (occurrence: US)
  Receive Date: 20220914
  Receipt Date: 20220914
  Transmission Date: 20221026
  Serious: No
  Sender: FDA-Public Use
  Company Number: US-PFIZER INC-202201159817

PATIENT
  Age: 71 Year
  Sex: Female

DRUGS (11)
  1. XELJANZ XR [Suspect]
     Active Substance: TOFACITINIB CITRATE
     Dosage: 11 MG, DAILY
     Route: 048
     Dates: start: 20220613
  2. ELIQUIS [Concomitant]
     Active Substance: APIXABAN
     Dosage: UNK
  3. DOCONEXENT\MINERALS\VITAMINS [Concomitant]
     Active Substance: DOCONEXENT\MINERALS\VITAMINS
     Dosage: UNK
  4. TERBINAFINE [Concomitant]
     Active Substance: TERBINAFINE
     Dosage: UNK
  5. SOTALOL [Concomitant]
     Active Substance: SOTALOL
     Dosage: UNK
  6. COMBIGAN [Concomitant]
     Active Substance: BRIMONIDINE TARTRATE\TIMOLOL MALEATE
     Dosage: UNK
  7. CRESTOR [Concomitant]
     Active Substance: ROSUVASTATIN CALCIUM
     Dosage: UNK
  8. LATANOPROST [Concomitant]
     Active Substance: LATANOPROST
     Dosage: UNK
  9. MICARDIS [Concomitant]
     Active Substance: TELMISARTAN
     Dosage: UNK
  10. PANTOPRAZOLE [Concomitant]
     Active Substance: PANTOPRAZOLE
     Dosage: UNK
  11. FOLIC ACID [Concomitant]
     Active Substance: FOLIC ACID
     Dosage: UNK

REACTIONS (1)
  - Onychomycosis [Recovering/Resolving]
